FAERS Safety Report 5053548-3 (Version None)
Quarter: 2006Q3

REPORT INFORMATION
  Report Type: 
  Country: None (occurrence: None)
  Receive Date: 20060712
  Receipt Date: 20060703
  Transmission Date: 20061208
  Serious: Yes (Death)
  Sender: FDA-Public Use
  Company Number: 200610858BVD

PATIENT
  Age: 58 Year
  Sex: Male

DRUGS (4)
  1. VARDENAFIL [Suspect]
     Indication: ERECTILE DYSFUNCTION
     Dosage: 20 MG TOTAL DAILY ORAL
     Route: 048
     Dates: start: 20060702
  2. AMANTADINE HCL [Concomitant]
  3. MADOPAR [Concomitant]
  4. CABASERIL [Concomitant]

REACTIONS (2)
  - RESUSCITATION [None]
  - VENTRICULAR FIBRILLATION [None]
